FAERS Safety Report 10552148 (Version 2)
Quarter: 2014Q4

REPORT INFORMATION
  Report Type: Spontaneous
  Country: DE (occurrence: DE)
  Receive Date: 20141029
  Receipt Date: 20141219
  Transmission Date: 20150529
  Serious: Yes (Death, Other)
  Sender: FDA-Public Use
  Company Number: DE-SA-2014SA145831

PATIENT
  Age: 67 Year
  Sex: Male

DRUGS (1)
  1. FABRAZYME [Suspect]
     Active Substance: AGALSIDASE BETA
     Indication: FABRY^S DISEASE
     Route: 042

REACTIONS (3)
  - Cerebrovascular accident [Unknown]
  - Nervous system disorder [Unknown]
  - Cerebrovascular disorder [Fatal]

NARRATIVE: CASE EVENT DATE: 2014
